FAERS Safety Report 14926778 (Version 1)
Quarter: 2018Q2

REPORT INFORMATION
  Report Type: Spontaneous
  Country: JP (occurrence: JP)
  Receive Date: 20180523
  Receipt Date: 20180523
  Transmission Date: 20180711
  Serious: Yes (Death, Life-Threatening, Hospitalization, Other)
  Sender: FDA-Public Use
  Company Number: JP-BRISTOL-MYERS SQUIBB COMPANY-BMS-2018-014621

PATIENT
  Age: 81 Year
  Sex: Female

DRUGS (1)
  1. OPDIVO [Suspect]
     Active Substance: NIVOLUMAB
     Indication: HEAD AND NECK CANCER METASTATIC
     Dosage: 240 MG, TWICE A MONTH
     Route: 041
     Dates: start: 20171003, end: 20180123

REACTIONS (2)
  - Asthenia [Fatal]
  - Hypopituitarism [Not Recovered/Not Resolved]

NARRATIVE: CASE EVENT DATE: 20171201
